FAERS Safety Report 13040386 (Version 2)
Quarter: 2016Q4

REPORT INFORMATION
  Report Type: Spontaneous
  Country: US (occurrence: US)
  Receive Date: 20161219
  Receipt Date: 20161221
  Transmission Date: 20170207
  Serious: Yes (Death, Life-Threatening, Hospitalization, Other)
  Sender: FDA-Public Use
  Company Number: US-SA-2016SA225745

PATIENT
  Age: 54 Year
  Sex: Female

DRUGS (5)
  1. MELPHALAN [Suspect]
     Active Substance: MELPHALAN
     Indication: NON-HODGKIN^S LYMPHOMA
     Route: 065
  2. FLUDARABINE PHOSPHATE. [Suspect]
     Active Substance: FLUDARABINE PHOSPHATE
     Indication: BONE MARROW CONDITIONING REGIMEN
     Route: 065
  3. FLUDARABINE PHOSPHATE. [Suspect]
     Active Substance: FLUDARABINE PHOSPHATE
     Indication: NON-HODGKIN^S LYMPHOMA
     Route: 065
  4. MELPHALAN [Suspect]
     Active Substance: MELPHALAN
     Indication: BONE MARROW CONDITIONING REGIMEN
     Route: 065
  5. TACROLIMUS. [Suspect]
     Active Substance: TACROLIMUS
     Indication: PROPHYLAXIS AGAINST GRAFT VERSUS HOST DISEASE
     Route: 065

REACTIONS (8)
  - Lung adenocarcinoma [Fatal]
  - Rhonchi [Fatal]
  - Pleural effusion [Fatal]
  - Dyspnoea [Fatal]
  - Tachypnoea [Fatal]
  - Breath sounds abnormal [Fatal]
  - Positron emission tomogram abnormal [Fatal]
  - Acute respiratory failure [Fatal]
